FAERS Safety Report 7447596-3 (Version None)
Quarter: 2011Q2

REPORT INFORMATION
  Report Type: 
  Country: None (occurrence: None)
  Receive Date: 20110429
  Receipt Date: 20110423
  Transmission Date: 20111010
  Serious: Yes (Hospitalization)
  Sender: FDA-Public Use
  Company Number: US-B.I. PHARMACEUTICALS,INC./RIDGEFIELD-2011-BP-11558BP

PATIENT
  Age: 82 Year
  Sex: Female

DRUGS (14)
  1. METOLAZONE [Concomitant]
     Indication: HYPERTENSION
  2. POTASSIUM CHLORIDE [Concomitant]
     Dosage: 40 MEQ
     Route: 048
  3. ARICEPT [Concomitant]
     Indication: DEMENTIA ALZHEIMER'S TYPE
     Dosage: 5 MG
  4. FENOFIBRATE [Concomitant]
     Indication: BLOOD CHOLESTEROL INCREASED
  5. PRADAXA [Suspect]
     Indication: ATRIAL FIBRILLATION
     Dosage: 150 MG
     Route: 048
  6. DIGOXIN [Concomitant]
     Indication: ARRHYTHMIA
     Dosage: 0.125 MG
  7. ALLOPURINOL [Concomitant]
     Indication: GOUT
     Dosage: 100 MG
  8. SIMVASTATIN [Concomitant]
     Indication: BLOOD CHOLESTEROL INCREASED
     Dosage: 20 MG
  9. SYNTHROID [Concomitant]
     Indication: HYPOTHYROIDISM
     Dosage: 175 MEQ
  10. FUROSEMIDE [Concomitant]
     Indication: HYPERTENSION
  11. LOVENOX [Concomitant]
     Indication: ANTICOAGULANT THERAPY
  12. MEDICATION NOT OTHERWISE SPECIFIED [Concomitant]
     Indication: HOSPITALISATION
  13. COREG [Concomitant]
     Indication: HYPERTENSION
  14. SPIRONOLACTONE [Concomitant]
     Indication: HYPERTENSION

REACTIONS (7)
  - DYSPNOEA [None]
  - HEAD INJURY [None]
  - ASTHENIA [None]
  - DECREASED APPETITE [None]
  - WEIGHT DECREASED [None]
  - FALL [None]
  - GAIT DISTURBANCE [None]
